FAERS Safety Report 7325896-5 (Version None)
Quarter: 2011Q1

REPORT INFORMATION
  Report Type: 
  Country: None (occurrence: None)
  Receive Date: 20110302
  Receipt Date: 20110111
  Transmission Date: 20110831
  Serious: Yes (Hospitalization)
  Sender: FDA-Public Use
  Company Number: NL-NAPPMUNDI-GBR-2011-0007782

PATIENT
  Sex: Female
  Weight: 103 kg

DRUGS (23)
  1. NEXIUM [Concomitant]
     Dosage: 40 MG, DAILY
  2. LYRICA [Concomitant]
     Dosage: 75 MG, BID
  3. BISOPROLOL FUMARATE [Concomitant]
     Dosage: 2.5 MG, DAILY
  4. SPIRONOLACTONE [Concomitant]
     Dosage: 25 MG, DAILY
  5. OXYNORM [Concomitant]
     Dosage: 5 MG, PRN
  6. LANTUS [Concomitant]
     Dosage: 30 ML, UNK
  7. SERETIDE [Concomitant]
     Dosage: 250 MCG, BID
  8. OXAZEPAM [Concomitant]
     Dosage: 5 MG, DAILY
  9. ACENOCOUMAROL [Concomitant]
     Dosage: 1 MG, UNK
  10. LOSARTAN POTASSIUM [Concomitant]
     Dosage: 50 MG, DAILY
  11. CETOMACROGOL                       /03594201/ [Concomitant]
  12. VASELINE                           /00473501/ [Concomitant]
  13. BUMETANIDE [Concomitant]
     Dosage: 2 MG, BID
  14. CALCI CHEW D3 [Concomitant]
     Dosage: 500 MG, DAILY
  15. ACETAMINOPHEN [Concomitant]
     Dosage: 500 MG, TID
  16. SIMVASTATIN [Concomitant]
     Dosage: 20 MG, DAILY
  17. GLUCAGEN [Concomitant]
     Dosage: 1 MG/ML, PRN
  18. SPIRIVA [Concomitant]
     Dosage: 18 MCG, DAILY
  19. LIDOCAINE [Concomitant]
     Dosage: 10 MG, PRN
  20. BUTRANS 10 MICROGRAM/URR [Suspect]
     Indication: PAIN
     Dosage: 10 MCG, Q1H
     Route: 062
     Dates: start: 20100824, end: 20101102
  21. BUTRANS 10 MICROGRAM/URR [Suspect]
     Dosage: 5 MCG, Q1H
     Route: 062
  22. NITROGLYCERIN [Concomitant]
     Dosage: UNK, PRN
  23. MOVICOLON [Concomitant]
     Dosage: UNK, DAILY

REACTIONS (1)
  - CARDIAC FAILURE [None]
